FAERS Safety Report 6221255-7 (Version None)
Quarter: 2009Q2

REPORT INFORMATION
  Report Type: 
  Country: None (occurrence: None)
  Receive Date: 20090610
  Receipt Date: 20090603
  Transmission Date: 20091009
  Serious: Yes (Death, Hospitalization)
  Sender: FDA-Public Use
  Company Number: US-MERCK-0905USA00894

PATIENT
  Age: 70 Year
  Sex: Female

DRUGS (4)
  1. SINGULAIR [Suspect]
     Route: 048
     Dates: start: 20071101
  2. EFFEXOR XR [Concomitant]
     Route: 065
  3. PREDNISONE [Concomitant]
     Route: 065
  4. HYDROCHLOROTHIAZIDE [Concomitant]
     Route: 065

REACTIONS (7)
  - CARDIOMEGALY [None]
  - CHEST DISCOMFORT [None]
  - COUGH [None]
  - DEATH [None]
  - FATIGUE [None]
  - VOMITING [None]
  - WHEEZING [None]
